FAERS Safety Report 5472227-1 (Version None)
Quarter: 2007Q3

REPORT INFORMATION
  Report Type: 
  Country: None (occurrence: None)
  Receive Date: 20070926
  Receipt Date: 20070910
  Transmission Date: 20080115
  Serious: Yes (Hospitalization)
  Sender: FDA-Public Use
  Company Number: 018202

PATIENT
  Age: 84 Year
  Sex: Male

DRUGS (11)
  1. WARFARIN SODIUM [Suspect]
     Dosage: 4 MG, QD, ORAL
     Route: 048
     Dates: start: 19820101
  2. ZYPREXA [Concomitant]
  3. LEXAPRO [Concomitant]
  4. ARICEPT [Concomitant]
  5. CAPTOPRIL [Concomitant]
  6. ATENOLOL [Concomitant]
  7. DIGOXIN [Concomitant]
  8. TEMAZEPAM [Concomitant]
  9. TIMOLOL MALEATE [Concomitant]
  10. LIPITOR [Concomitant]
  11. STOOL SOFTENER (DOCUSATE SODIUM) [Concomitant]

REACTIONS (10)
  - ANOREXIA [None]
  - FEAR [None]
  - GASTRIC DISORDER [None]
  - HEADACHE [None]
  - MALAISE [None]
  - NAUSEA [None]
  - OBSTRUCTION [None]
  - STOMACH DISCOMFORT [None]
  - THROAT TIGHTNESS [None]
  - WEIGHT DECREASED [None]
